FAERS Safety Report 8409904-6 (Version None)
Quarter: 2012Q2

REPORT INFORMATION
  Report Type: 
  Country: None (occurrence: None)
  Receive Date: 20120529
  Receipt Date: 20120521
  Transmission Date: 20120825
  Serious: Yes (Death)
  Sender: FDA-Public Use
  Company Number: DSA_57461_2012

PATIENT
  Sex: Female

DRUGS (5)
  1. DEPAKOTE [Concomitant]
  2. RITALIN [Concomitant]
  3. XENAZINE [Suspect]
     Indication: HUNTINGTON'S DISEASE
     Dosage: 50 MG QQ
     Dates: start: 20120120, end: 20120505
  4. ZYPREXA [Concomitant]
  5. CLONIDINE [Concomitant]

REACTIONS (1)
  - DEATH [None]
